FAERS Safety Report 7083897-9 (Version None)
Quarter: 2010Q4

REPORT INFORMATION
  Report Type: 
  Country: None (occurrence: None)
  Receive Date: 20101104
  Receipt Date: 20091117
  Transmission Date: 20110411
  Serious: No
  Sender: FDA-Public Use
  Company Number: US-ABBOTT-09P-163-0609911-00

PATIENT
  Sex: Male
  Weight: 65.83 kg

DRUGS (2)
  1. KALETRA [Suspect]
     Indication: HIV INFECTION
     Dates: start: 20070601, end: 20091101
  2. TRUVATA [Concomitant]
     Indication: HIV INFECTION

REACTIONS (2)
  - DIARRHOEA [None]
  - FACIAL WASTING [None]
